FAERS Safety Report 23282557 (Version 1)
Quarter: 2023Q4

REPORT INFORMATION
  Report Type: Spontaneous
  Country: US (occurrence: None)
  Receive Date: 20231208
  Receipt Date: 20231208
  Transmission Date: 20240109
  Serious: No
  Sender: FDA-Public Use
  Company Number: None

PATIENT
  Sex: Female

DRUGS (1)
  1. TERIPARATIDE [Suspect]
     Active Substance: TERIPARATIDE

REACTIONS (7)
  - Vomiting [None]
  - Confusional state [None]
  - Hyperhidrosis [None]
  - Abdominal pain [None]
  - Asthenia [None]
  - Arthropathy [None]
  - Dyspnoea [None]
